FAERS Safety Report 19229823 (Version 1)
Quarter: 2021Q2

REPORT INFORMATION
  Report Type: Spontaneous
  Country: ES (occurrence: ES)
  Receive Date: 20210506
  Receipt Date: 20210506
  Transmission Date: 20210717
  Serious: Yes (Hospitalization)
  Sender: FDA-Public Use
  Company Number: NVSC2021ES094973

PATIENT
  Age: 68 Year
  Sex: Male

DRUGS (2)
  1. PREDNISONE. [Interacting]
     Active Substance: PREDNISONE
     Indication: DRESSLER^S SYNDROME
     Dosage: 20 MG, 1 TOTAL
     Route: 048
     Dates: start: 20191108, end: 20191204
  2. MYCOPHENOLATE MOFETIL. [Suspect]
     Active Substance: MYCOPHENOLATE MOFETIL
     Indication: LIVER TRANSPLANT
     Dosage: 2 G, QD
     Route: 048
     Dates: start: 20191101, end: 20191205

REACTIONS (1)
  - Listeria encephalitis [Recovering/Resolving]

NARRATIVE: CASE EVENT DATE: 20191202
